FAERS Safety Report 4431835-7 (Version None)
Quarter: 2004Q3

REPORT INFORMATION
  Report Type: 
  Country: None (occurrence: None)
  Receive Date: 20040819
  Receipt Date: 20040806
  Transmission Date: 20050211
  Serious: Yes (Other)
  Sender: FDA-Public Use
  Company Number: 2004-00454FE

PATIENT
  Age: 35 Year
  Sex: Female

DRUGS (7)
  1. PENTASA [Suspect]
     Indication: COLITIS
     Dosage: 2 UNK; UNKNOWN/NO DATA
     Route: 065
     Dates: start: 20031024
  2. DESOGESTREL (DESOGESTREL) [Suspect]
     Indication: MENSTRUATION IRREGULAR
     Dosage: 1 UNK; ORALLY
     Route: 048
     Dates: start: 20040527, end: 20040705
  3. NORETHISTERONE [Concomitant]
  4. NORINYL [Concomitant]
  5. PROCHORPERAZINE [Concomitant]
  6. CO-CODAMOL [Concomitant]
  7. LOPERAMIDE HCL [Concomitant]

REACTIONS (3)
  - CHEST DISCOMFORT [None]
  - ENERGY INCREASED [None]
  - PALPITATIONS [None]
